FAERS Safety Report 15030827 (Version 1)
Quarter: 2018Q2

REPORT INFORMATION
  Report Type: Report from Study
  Country: CA (occurrence: CA)
  Receive Date: 20180619
  Receipt Date: 20180619
  Transmission Date: 20180711
  Serious: Yes (Hospitalization)
  Sender: FDA-Public Use
  Company Number: CA-ACTELION-A-NJ2018-171434

PATIENT
  Age: 75 Year
  Sex: Female

DRUGS (19)
  1. FOSAMAX [Concomitant]
     Active Substance: ALENDRONATE SODIUM
  2. SYMBICORT [Concomitant]
     Active Substance: BUDESONIDE\FORMOTEROL FUMARATE DIHYDRATE
  3. SPIRIVA [Concomitant]
     Active Substance: TIOTROPIUM BROMIDE MONOHYDRATE
  4. UPTRAVI [Suspect]
     Active Substance: SELEXIPAG
     Dosage: 400 MCG, BID
     Route: 048
  5. ROSUVASTATIN. [Concomitant]
     Active Substance: ROSUVASTATIN
  6. PLAVIX [Concomitant]
     Active Substance: CLOPIDOGREL BISULFATE
  7. PLAQUENIL [Concomitant]
     Active Substance: HYDROXYCHLOROQUINE SULFATE
  8. LASIX [Concomitant]
     Active Substance: FUROSEMIDE
     Dosage: UNK, PRN
  9. VITAMIN D [Concomitant]
     Active Substance: CHOLECALCIFEROL
  10. UPTRAVI [Suspect]
     Active Substance: SELEXIPAG
     Indication: PULMONARY ARTERIAL HYPERTENSION
     Dosage: 200 MCG, UNK
     Route: 048
     Dates: start: 20180410
  11. UPTRAVI [Suspect]
     Active Substance: SELEXIPAG
     Dosage: 600 MCG, UNK
     Route: 048
  12. PAROXETINE. [Concomitant]
     Active Substance: PAROXETINE
  13. ACETYLCYSTEINE. [Concomitant]
     Active Substance: ACETYLCYSTEINE
  14. ADCIRCA [Concomitant]
     Active Substance: TADALAFIL
  15. VENTOLIN [Concomitant]
     Active Substance: ALBUTEROL SULFATE
  16. CALCIUM [Concomitant]
     Active Substance: CALCIUM
     Dosage: UNK
  17. PALAFER [Concomitant]
     Active Substance: FERROUS FUMARATE
  18. RABEPRAZOLE [Concomitant]
     Active Substance: RABEPRAZOLE
  19. UPTRAVI [Suspect]
     Active Substance: SELEXIPAG
     Dosage: 600 MCG, BID
     Route: 048

REACTIONS (7)
  - Multiple allergies [Not Recovered/Not Resolved]
  - Laceration [Not Recovered/Not Resolved]
  - Aphonia [Not Recovered/Not Resolved]
  - Syncope [Not Recovered/Not Resolved]
  - Diarrhoea [Recovered/Resolved]
  - Headache [Unknown]
  - Fall [Not Recovered/Not Resolved]

NARRATIVE: CASE EVENT DATE: 20180420
